FAERS Safety Report 11867786 (Version 4)
Quarter: 2016Q1

REPORT INFORMATION
  Report Type: Spontaneous
  Country: DE (occurrence: DE)
  Receive Date: 20151224
  Receipt Date: 20160205
  Transmission Date: 20160526
  Serious: Yes (Death)
  Sender: FDA-Public Use
  Company Number: DE-SA-2015SA216850

PATIENT
  Age: 73 Year
  Sex: Male
  Weight: 85 kg

DRUGS (2)
  1. CLEXANE [Suspect]
     Active Substance: ENOXAPARIN SODIUM
     Indication: THROMBOSIS PROPHYLAXIS
     Dosage: DOSE- 0.4 ML EVERY SECOND
     Route: 058
     Dates: start: 20151204, end: 20151214
  2. NOVALGIN [Concomitant]
     Active Substance: METAMIZOLE SODIUM
     Indication: PAIN
     Dosage: STRENGTH: 500MG?FREQUENCY: 1-1-1-1
     Route: 048
     Dates: start: 20151206, end: 20151214

REACTIONS (2)
  - Pulmonary embolism [Fatal]
  - Wrong technique in product usage process [Fatal]

NARRATIVE: CASE EVENT DATE: 20151214
